FAERS Safety Report 5145280-2 (Version None)
Quarter: 2006Q4

REPORT INFORMATION
  Report Type: 
  Country: None (occurrence: None)
  Receive Date: 20061107
  Receipt Date: 20060606
  Transmission Date: 20070319
  Serious: Yes (Hospitalization)
  Sender: FDA-Public Use
  Company Number: BE-ELI_LILLY_AND_COMPANY-BE200606001718

PATIENT
  Age: 42 Year
  Sex: Male

DRUGS (3)
  1. ALIMTA [Suspect]
     Indication: MESOTHELIOMA MALIGNANT
     Dosage: 500 MG/M2
     Dates: start: 20040216
  2. ALIMTA [Suspect]
     Dosage: 500 MG/M2
     Dates: end: 20040801
  3. THERAPEUTIC RADIOPHARMACEUTICALS [Concomitant]
     Indication: MESOTHELIOMA MALIGNANT
     Dosage: 54 GRAY, 30 FRACTIONS
     Dates: start: 20040611

REACTIONS (2)
  - OESOPHAGITIS [None]
  - RIGHT VENTRICULAR FAILURE [None]
